FAERS Safety Report 4772890-4 (Version None)
Quarter: 2005Q3

REPORT INFORMATION
  Report Type: 
  Country: None (occurrence: None)
  Receive Date: 20050916
  Receipt Date: 20050912
  Transmission Date: 20060218
  Serious: Yes (Death, Hospitalization)
  Sender: FDA-Public Use
  Company Number: 2005AL002046

PATIENT
  Age: 65 Year
  Sex: Female

DRUGS (12)
  1. MORPHINE SULFATE [Suspect]
     Dosage: 850 MG
  2. DIAZEPAM [Suspect]
     Dosage: 60 MG
  3. UNSPECIFIED ANTI-NAUSEA  MEDICATION [Concomitant]
  4. ALCOHOL [Concomitant]
  5. THYROXINE SODIUM [Concomitant]
  6. OMEPRAZOLE [Concomitant]
  7. AMIIODARONE [Concomitant]
  8. PREDNISOLONE [Concomitant]
  9. QUININE [Concomitant]
  10. FUROSEMIDE [Concomitant]
  11. UNSPECIFIED INTRAVENOUS FLUIDS [Concomitant]
  12. METOCLOPRAMIDE [Concomitant]

REACTIONS (15)
  - ABDOMINAL TENDERNESS [None]
  - ALCOHOL USE [None]
  - ASTHENIA [None]
  - BODY TEMPERATURE DECREASED [None]
  - DEPRESSION [None]
  - GASTRIC DISORDER [None]
  - GENERAL PHYSICAL HEALTH DETERIORATION [None]
  - INTENTIONAL MISUSE [None]
  - LOSS OF CONSCIOUSNESS [None]
  - MULTIPLE DRUG OVERDOSE [None]
  - OXYGEN SATURATION DECREASED [None]
  - PERIPHERAL COLDNESS [None]
  - RESPIRATORY ARREST [None]
  - RESPIRATORY FAILURE [None]
  - RESPIRATORY RATE INCREASED [None]
